FAERS Safety Report 11184316 (Version 8)
Quarter: 2017Q3

REPORT INFORMATION
  Report Type: Spontaneous
  Country: JP (occurrence: JP)
  Receive Date: 20150612
  Receipt Date: 20170705
  Transmission Date: 20171127
  Serious: Yes (Hospitalization)
  Sender: FDA-Public Use
  Company Number: JP-ROCHE-1563139

PATIENT
  Age: 4 Year
  Sex: Female

DRUGS (18)
  1. RITUXAN [Suspect]
     Active Substance: RITUXIMAB
     Indication: NEPHROTIC SYNDROME
     Route: 042
     Dates: start: 20150303, end: 20150324
  2. BAKTAR [Suspect]
     Active Substance: SULFAMETHOXAZOLE\TRIMETHOPRIM
     Indication: INFECTION PROPHYLAXIS
     Route: 048
     Dates: start: 20150303, end: 20150727
  3. PREDNISOLONE. [Suspect]
     Active Substance: PREDNISOLONE
     Route: 048
     Dates: start: 20150416, end: 20150429
  4. BREDININ [Concomitant]
     Active Substance: MIZORIBINE
     Indication: NEPHROTIC SYNDROME
     Route: 048
     Dates: start: 20140721, end: 20150227
  5. SEPAMIT-R [Concomitant]
     Active Substance: NIFEDIPINE
     Route: 048
     Dates: start: 20150304, end: 20150309
  6. PREDNISOLONE. [Suspect]
     Active Substance: PREDNISOLONE
     Indication: NEPHROTIC SYNDROME
     Route: 048
     Dates: start: 20150221
  7. CALONAL [Concomitant]
     Active Substance: ACETAMINOPHEN
     Route: 048
     Dates: start: 20150303, end: 20150324
  8. BREDININ [Concomitant]
     Active Substance: MIZORIBINE
     Indication: NEPHROTIC SYNDROME
     Route: 048
     Dates: start: 20150721, end: 20160729
  9. RITUXAN [Suspect]
     Active Substance: RITUXIMAB
     Route: 042
  10. PREDNISOLONE. [Suspect]
     Active Substance: PREDNISOLONE
     Route: 048
     Dates: start: 20150402, end: 20150415
  11. NEORAL [Concomitant]
     Active Substance: CYCLOSPORINE
     Indication: NEPHROTIC SYNDROME
     Route: 048
     Dates: start: 20130915, end: 20150814
  12. POLARAMINE [Concomitant]
     Active Substance: DEXCHLORPHENIRAMINE MALEATE
     Route: 048
     Dates: start: 20150303, end: 20150324
  13. SEPAMIT-R [Concomitant]
     Active Substance: NIFEDIPINE
     Route: 048
     Dates: start: 20150311, end: 20150319
  14. PREDNISOLONE. [Suspect]
     Active Substance: PREDNISOLONE
     Route: 048
     Dates: end: 20150318
  15. SOLU-MEDROL [Concomitant]
     Active Substance: METHYLPREDNISOLONE SODIUM SUCCINATE
     Route: 042
     Dates: start: 20150303, end: 20150324
  16. SEPAMIT-R [Concomitant]
     Active Substance: NIFEDIPINE
     Indication: HYPERTENSION
     Route: 048
     Dates: start: 20150106, end: 20150302
  17. POLYGLOBIN N [Concomitant]
     Indication: VARICELLA
     Route: 042
     Dates: start: 20150611, end: 20150611
  18. PREDNISOLONE. [Suspect]
     Active Substance: PREDNISOLONE
     Route: 048
     Dates: start: 20150319, end: 20150401

REACTIONS (10)
  - Blood pressure decreased [Recovered/Resolved]
  - Hair colour changes [Recovering/Resolving]
  - Stomatitis [Recovered/Resolved]
  - Pneumonia bacterial [Recovered/Resolved]
  - Hypertension [Recovering/Resolving]
  - Cough [Recovered/Resolved]
  - Granulocyte count decreased [Recovering/Resolving]
  - Nasopharyngitis [Recovered/Resolved]
  - Entropion [Recovered/Resolved]
  - Influenza [Recovering/Resolving]

NARRATIVE: CASE EVENT DATE: 20150303
